FAERS Safety Report 8439201-4 (Version None)
Quarter: 2012Q2

REPORT INFORMATION
  Report Type: 
  Country: None (occurrence: None)
  Receive Date: 20120615
  Receipt Date: 20120605
  Transmission Date: 20120825
  Serious: Yes (Hospitalization)
  Sender: FDA-Public Use
  Company Number: NL-CELGENEUS-114-21880-12060482

PATIENT
  Sex: Male
  Weight: 87 kg

DRUGS (3)
  1. DAUNORUBICIN HCL [Suspect]
     Route: 041
     Dates: start: 20120516
  2. CYTARABINE [Suspect]
     Route: 041
     Dates: start: 20120516
  3. REVLIMID [Suspect]
     Route: 048
     Dates: start: 20120516, end: 20120531

REACTIONS (1)
  - HEPATIC FUNCTION ABNORMAL [None]
